FAERS Safety Report 18403364 (Version 1)
Quarter: 2020Q4

REPORT INFORMATION
  Report Type: Spontaneous
  Country: US (occurrence: US)
  Receive Date: 20201019
  Receipt Date: 20201019
  Transmission Date: 20210114
  Serious: Yes (Hospitalization)
  Sender: FDA-Public Use
  Company Number: US-UNICHEM PHARMACEUTICALS (USA) INC-UCM202010-001196

PATIENT
  Age: 39 Year
  Sex: Female

DRUGS (4)
  1. AMOXICILLIN. [Suspect]
     Active Substance: AMOXICILLIN
     Indication: LYMPHADENOPATHY
  2. AMOXICILLIN. [Suspect]
     Active Substance: AMOXICILLIN
     Indication: PHARYNGITIS
  3. CARBAMAZEPINE. [Suspect]
     Active Substance: CARBAMAZEPINE
     Indication: PARTIAL SEIZURES
  4. LAMOTRIGINE. [Suspect]
     Active Substance: LAMOTRIGINE
     Indication: PARTIAL SEIZURES

REACTIONS (12)
  - Diabetic ketoacidosis [Recovered/Resolved]
  - Rash [Recovered/Resolved]
  - Fulminant type 1 diabetes mellitus [Not Recovered/Not Resolved]
  - Sepsis [Recovered/Resolved]
  - Acute respiratory distress syndrome [Recovered/Resolved]
  - Hypovolaemic shock [Recovered/Resolved]
  - Face oedema [Recovered/Resolved]
  - Non-alcoholic steatohepatitis [Recovered/Resolved]
  - Seizure [Unknown]
  - Hepatic failure [Recovered/Resolved]
  - Pneumonia bacterial [Recovered/Resolved]
  - Drug reaction with eosinophilia and systemic symptoms [Recovered/Resolved]
